FAERS Safety Report 19056831 (Version 2)
Quarter: 2021Q2

REPORT INFORMATION
  Report Type: Spontaneous
  Country: US (occurrence: US)
  Receive Date: 20210325
  Receipt Date: 20210506
  Transmission Date: 20210717
  Serious: Yes (Death, Hospitalization)
  Sender: FDA-Public Use
  Company Number: US-FRESENIUS KABI-FK202102969

PATIENT
  Age: 65 Year
  Sex: Male
  Weight: 64.5 kg

DRUGS (4)
  1. FLUOROURACIL (MANUFACTURER UNKNOWN) [Suspect]
     Active Substance: FLUOROURACIL
     Indication: BILE DUCT CANCER
     Route: 042
     Dates: end: 20210215
  2. CALCIUM FOLINATE [Suspect]
     Active Substance: LEUCOVORIN CALCIUM
     Indication: BILE DUCT CANCER
     Route: 042
     Dates: start: 20210201, end: 20210215
  3. NIVOLUMAB [Suspect]
     Active Substance: NIVOLUMAB
     Indication: BILE DUCT CANCER
     Route: 042
     Dates: start: 20210201, end: 20210215
  4. IRINOTECAN [Suspect]
     Active Substance: IRINOTECAN
     Indication: BILE DUCT CANCER
     Dosage: NANOLIPOSOMAL IRINOTECAN
     Route: 042
     Dates: start: 20210201, end: 20210215

REACTIONS (2)
  - Failure to thrive [Recovered/Resolved]
  - Death [Fatal]

NARRATIVE: CASE EVENT DATE: 20210301
